FAERS Safety Report 8153611-4 (Version None)
Quarter: 2012Q1

REPORT INFORMATION
  Report Type: 
  Country: None (occurrence: None)
  Receive Date: 20120216
  Receipt Date: 20120216
  Transmission Date: 20120608
  Serious: No
  Sender: FDA-Public Use
  Company Number: None

PATIENT
  Sex: Male
  Weight: 140 kg

DRUGS (1)
  1. CEFDINIR [Suspect]
     Indication: SKIN ULCER
     Dosage: MG 300 2 CAPSULES DAILY BY MOUTH
     Route: 048
     Dates: start: 20100109

REACTIONS (2)
  - VISION BLURRED [None]
  - VISUAL ACUITY REDUCED [None]
